FAERS Safety Report 19451121 (Version 1)
Quarter: 2021Q2

REPORT INFORMATION
  Report Type: Spontaneous
  Country: US (occurrence: US)
  Receive Date: 20210623
  Receipt Date: 20210623
  Transmission Date: 20210717
  Serious: No
  Sender: FDA-Public Use
  Company Number: US-ASTRAZENECA-2021A515016

PATIENT
  Sex: Female

DRUGS (1)
  1. FARXIGA [Suspect]
     Active Substance: DAPAGLIFLOZIN PROPANEDIOL
     Indication: ACUTE PAINFUL NEUROPATHY OF RAPID GLYCAEMIC CONTROL
     Route: 048

REACTIONS (3)
  - Vulvovaginal mycotic infection [Unknown]
  - COVID-19 [Unknown]
  - Rash [Unknown]
